FAERS Safety Report 9473293 (Version 2)
Quarter: 2014Q3

REPORT INFORMATION
  Report Type: Spontaneous
  Country: US (occurrence: US)
  Receive Date: 20130823
  Receipt Date: 20140808
  Transmission Date: 20150326
  Serious: No
  Sender: FDA-Public Use
  Company Number: US-BRISTOL-MYERS SQUIBB COMPANY-18857243

PATIENT
  Age: 64 Year
  Sex: Male

DRUGS (11)
  1. ZESTORETIC [Concomitant]
     Active Substance: HYDROCHLOROTHIAZIDE\LISINOPRIL
  2. NEURONTIN [Concomitant]
     Active Substance: GABAPENTIN
  3. ATENOLOL. [Concomitant]
     Active Substance: ATENOLOL
  4. SPRYCEL [Suspect]
     Active Substance: DASATINIB
     Indication: CHRONIC MYELOID LEUKAEMIA
     Dosage: PATIENT WAS OFF SPRYCEL FOR TWO MONTHS.
     Dates: start: 20121008
  5. CENTRUM [Concomitant]
     Active Substance: VITAMINS
  6. CYMBALTA [Concomitant]
     Active Substance: DULOXETINE HYDROCHLORIDE
  7. SYNTHROID [Concomitant]
     Active Substance: LEVOTHYROXINE SODIUM
  8. ZOCOR [Concomitant]
     Active Substance: SIMVASTATIN
  9. VITAMIN D3 [Concomitant]
     Active Substance: CHOLECALCIFEROL
  10. OMEGA 3 FISH OIL [Concomitant]
     Active Substance: FISH OIL\OMEGA-3 FATTY ACIDS
  11. CARAFATE [Concomitant]
     Active Substance: SUCRALFATE

REACTIONS (4)
  - Chest discomfort [Unknown]
  - Red blood cell count decreased [Unknown]
  - Anxiety [Unknown]
  - Fatigue [Unknown]
